FAERS Safety Report 7414164-9 (Version None)
Quarter: 2011Q1

REPORT INFORMATION
  Report Type: 
  Country: None (occurrence: None)
  Receive Date: 20110302
  Receipt Date: 20101129
  Transmission Date: 20110831
  Serious: No
  Sender: FDA-Public Use
  Company Number: 018522

PATIENT
  Sex: Female

DRUGS (3)
  1. CIMZIA [Suspect]
     Indication: CROHN'S DISEASE
     Dosage: 400 MG 1X/28 DAYS SUBCUTANEOUS, 400 MG 1X/4 WEEKS SUBCUTANEOUS
     Route: 058
     Dates: start: 20100623
  2. CIMZIA [Suspect]
     Indication: CROHN'S DISEASE
     Dosage: 400 MG 1X/28 DAYS SUBCUTANEOUS, 400 MG 1X/4 WEEKS SUBCUTANEOUS
     Route: 058
     Dates: start: 20100101
  3. CIMZIA [Suspect]

REACTIONS (6)
  - URINARY TRACT INFECTION [None]
  - RECTAL ABSCESS [None]
  - PAIN [None]
  - EXOSTOSIS [None]
  - STOMATITIS [None]
  - ANAL FISTULA [None]
